FAERS Safety Report 26016468 (Version 1)
Quarter: 2025Q4

REPORT INFORMATION
  Report Type: Spontaneous
  Country: BR (occurrence: BR)
  Receive Date: 20251110
  Receipt Date: 20251110
  Transmission Date: 20260117
  Serious: Yes (Other)
  Sender: CHEPLAPHARM
  Company Number: BR-CHEPLA-2025012695

PATIENT
  Age: 26 Year
  Sex: Female
  Weight: 70 kg

DRUGS (10)
  1. CLONAZEPAM [Suspect]
     Active Substance: CLONAZEPAM
     Indication: Infantile spasms
     Dosage: 6 DROPS AND LATER INCREASED IT TO 20 DROPS. MAH REF 115240011?DAILY DOSE: 24 DROP
     Route: 048
     Dates: start: 1999, end: 202508
  2. CLONAZEPAM [Suspect]
     Active Substance: CLONAZEPAM
     Indication: Lennox-Gastaut syndrome
     Dosage: 6 DROPS AND LATER INCREASED IT TO 20 DROPS. MAH REF 115240011?DAILY DOSE: 24 DROP
     Route: 048
     Dates: start: 1999, end: 202508
  3. CLONAZEPAM [Suspect]
     Active Substance: CLONAZEPAM
     Indication: Infantile spasms
     Dosage: RIVOTRIL 2 MG AT A DOSAGE OF 1 TABLET EVERY 6 HOURS. MAH REF 115240011?DAILY DOSE: 4 DOSAGE FORM
     Route: 048
     Dates: start: 20251014, end: 20251017
  4. CLONAZEPAM [Suspect]
     Active Substance: CLONAZEPAM
     Indication: Lennox-Gastaut syndrome
     Dosage: RIVOTRIL 2 MG AT A DOSAGE OF 1 TABLET EVERY 6 HOURS. MAH REF 115240011?DAILY DOSE: 4 DOSAGE FORM
     Route: 048
     Dates: start: 20251014, end: 20251017
  5. CLONAZEPAM [Suspect]
     Active Substance: CLONAZEPAM
     Indication: Infantile spasms
     Dosage: THE PATIENT BEGAN USING 20 DROPS EVERY 6 HOURS?DAILY DOSE: 80 DROP
     Route: 048
  6. CLONAZEPAM [Suspect]
     Active Substance: CLONAZEPAM
     Indication: Lennox-Gastaut syndrome
     Dosage: THE PATIENT BEGAN USING 20 DROPS EVERY 6 HOURS?DAILY DOSE: 80 DROP
     Route: 048
  7. CLONAZEPAM [Suspect]
     Active Substance: CLONAZEPAM
     Dates: start: 202508
  8. Sonebon [Concomitant]
     Indication: Seizure
     Dosage: 1 TABLET DAILY SINCE 6 MONTHS OF AGE?DAILY DOSE: 1 DOSAGE FORM
     Route: 048
     Dates: start: 1999
  9. PHENYTOIN SODIUM [Concomitant]
     Active Substance: PHENYTOIN SODIUM
     Indication: Seizure
     Dosage: 1 AND ? TABLET EVERY 12 HOURS SINCE 2010?DAILY DOSE: 3 DOSAGE FORM
     Route: 048
     Dates: start: 2010
  10. OXCARBAZEPINE [Concomitant]
     Active Substance: OXCARBAZEPINE
     Indication: Seizure
     Dosage: 10 ML TWICE DAILY SINCE 2010?DAILY DOSE: 20 MILLILITRE
     Dates: start: 2010

REACTIONS (6)
  - Epilepsy [Unknown]
  - Secretion discharge [Recovered/Resolved]
  - Cough [Recovered/Resolved]
  - Somnolence [Not Recovered/Not Resolved]
  - Therapy interrupted [Not Recovered/Not Resolved]
  - Product availability issue [Not Recovered/Not Resolved]

NARRATIVE: CASE EVENT DATE: 20250801
